FAERS Safety Report 4664997-7 (Version None)
Quarter: 2005Q2

REPORT INFORMATION
  Report Type: 
  Country: None (occurrence: None)
  Receive Date: 20050518
  Receipt Date: 20050506
  Transmission Date: 20051028
  Serious: Yes (Other)
  Sender: FDA-Public Use
  Company Number: GB-BRISTOL-MYERS SQUIBB COMPANY-12959862

PATIENT
  Sex: Male

DRUGS (2)
  1. ADCORTYL INJ [Suspect]
  2. LIGNOCAINE [Concomitant]

REACTIONS (4)
  - HYPERSENSITIVITY [None]
  - HYPOTENSION [None]
  - RASH PRURITIC [None]
  - URTICARIA [None]
